FAERS Safety Report 18139554 (Version 1)
Quarter: 2020Q3

REPORT INFORMATION
  Report Type: Spontaneous
  Country: US (occurrence: US)
  Receive Date: 20200811
  Receipt Date: 20200811
  Transmission Date: 20201103
  Serious: No
  Sender: FDA-Public Use
  Company Number: None

PATIENT
  Age: 62 Year
  Sex: Female

DRUGS (1)
  1. FORTEO [Suspect]
     Active Substance: TERIPARATIDE
     Route: 058
     Dates: start: 201910, end: 202008

REACTIONS (4)
  - Pyrexia [None]
  - Infection [None]
  - Pneumonia [None]
  - Rheumatoid arthritis [None]

NARRATIVE: CASE EVENT DATE: 20200505
